FAERS Safety Report 19601540 (Version 1)
Quarter: 2021Q3

REPORT INFORMATION
  Report Type: Spontaneous
  Country: JP (occurrence: JP)
  Receive Date: 20210722
  Receipt Date: 20210722
  Transmission Date: 20211014
  Serious: Yes (Hospitalization, Other)
  Sender: FDA-Public Use
  Company Number: JP-JNJFOC-20210743581

PATIENT
  Sex: Female

DRUGS (7)
  1. SUVENYL [Concomitant]
     Active Substance: HYALURONATE SODIUM
     Route: 051
  2. XELJANZ [Concomitant]
     Active Substance: TOFACITINIB CITRATE
     Route: 065
  3. REMICADE [Suspect]
     Active Substance: INFLIXIMAB
     Route: 042
  4. XYLOCAINE [Concomitant]
     Active Substance: LIDOCAINE HYDROCHLORIDE
     Route: 051
  5. REMICADE [Suspect]
     Active Substance: INFLIXIMAB
     Indication: RHEUMATOID ARTHRITIS
     Route: 042
  6. ORENCIA [Concomitant]
     Active Substance: ABATACEPT
     Route: 065
  7. FLOMOX [Concomitant]
     Route: 065

REACTIONS (4)
  - Arthralgia [Unknown]
  - Embolism [Unknown]
  - Anaphylactic shock [Unknown]
  - Antiphospholipid syndrome [Unknown]
